FAERS Safety Report 8022628-2 (Version None)
Quarter: 2011Q4

REPORT INFORMATION
  Report Type: 
  Country: None (occurrence: None)
  Receive Date: 20111229
  Receipt Date: 20111216
  Transmission Date: 20120403
  Serious: Yes (Other)
  Sender: FDA-Public Use
  Company Number: 1000026247

PATIENT
  Age: 92 Year

DRUGS (7)
  1. RISPERDAL [Concomitant]
  2. BUP-4 (PROPIVERINE HYDROCHLORIDE) (PROPIVERINE HYDROCHLORIDE) [Concomitant]
  3. RASILEZ (ALISKIREN FUMARATE) (ALISKIREN FUMARATE) [Concomitant]
  4. PARIET (RABEPRAZOLE SODIUM) (RABEPRAZOLE SODIUM) [Concomitant]
  5. ARICEPT [Concomitant]
  6. CARVEDILOL [Concomitant]
  7. LEXAPRO [Suspect]
     Indication: DEPRESSION
     Dosage: 10 MG (10 MG, 1 IN 1 D), ORAL
     Route: 048
     Dates: start: 20110907, end: 20111204

REACTIONS (5)
  - NO THERAPEUTIC RESPONSE [None]
  - ANAEMIA [None]
  - LOSS OF CONSCIOUSNESS [None]
  - GASTROOESOPHAGEAL REFLUX DISEASE [None]
  - BLOOD PRESSURE SYSTOLIC INCREASED [None]
